FAERS Safety Report 6194988-9 (Version None)
Quarter: 2009Q2

REPORT INFORMATION
  Report Type: 
  Country: None (occurrence: None)
  Receive Date: 20090519
  Receipt Date: 20090515
  Transmission Date: 20091009
  Serious: Yes (Other)
  Sender: FDA-Public Use
  Company Number: A0779452A

PATIENT
  Age: 68 Year
  Sex: Male
  Weight: 102.3 kg

DRUGS (1)
  1. VALTREX [Suspect]
     Indication: HERPES VIRUS INFECTION
     Dosage: 1CAP PER DAY

REACTIONS (7)
  - DRUG INEFFECTIVE [None]
  - DRUG RESISTANCE [None]
  - DRY SKIN [None]
  - HERPES VIRUS INFECTION [None]
  - ILL-DEFINED DISORDER [None]
  - TYPE 2 DIABETES MELLITUS [None]
  - WEIGHT DECREASED [None]
